FAERS Safety Report 8978293 (Version 1)
Quarter: 2012Q4

REPORT INFORMATION
  Report Type: 
  Country: US (occurrence: US)
  Receive Date: 20121220
  Receipt Date: 20121220
  Transmission Date: 20130627
  Serious: No
  Sender: FDA-Public Use
  Company Number: US-009507513-1210USA009850

PATIENT
  Age: 54 Year
  Sex: Male

DRUGS (4)
  1. ZEGERID OTC CAPSULES [Suspect]
     Indication: GASTROINTESTINAL DISORDER
     Dosage: 20 mg, qam
     Route: 048
  2. BUSPAR [Concomitant]
     Indication: PRODUCT USED FOR UNKNOWN INDICATION
     Dosage: 7.5 mg, Unknown
  3. TRAZODONE HYDROCHLORIDE [Concomitant]
     Indication: PRODUCT USED FOR UNKNOWN INDICATION
     Dosage: 25 mg, Unknown
  4. XANAX [Concomitant]
     Indication: PRODUCT USED FOR UNKNOWN INDICATION
     Dosage: 1 mg, Unknown

REACTIONS (2)
  - Nervousness [Recovering/Resolving]
  - Incorrect drug administration rate [Unknown]
